FAERS Safety Report 19707930 (Version 1)
Quarter: 2021Q3

REPORT INFORMATION
  Report Type: Spontaneous
  Country: US (occurrence: US)
  Receive Date: 20210817
  Receipt Date: 20210817
  Transmission Date: 20211014
  Serious: No
  Sender: FDA-Public Use
  Company Number: US-SPECGX-T202001404

PATIENT
  Sex: Female
  Weight: 57 kg

DRUGS (5)
  1. OXYCODONE/ACETAMINOPHEN [Suspect]
     Active Substance: ACETAMINOPHEN\OXYCODONE HYDROCHLORIDE
     Dosage: 5 MG/325 MG, TAKING MOSTLY TWO TIMES A DA
     Route: 048
     Dates: start: 2020, end: 2020
  2. OXYCODONE/ACETAMINOPHEN [Suspect]
     Active Substance: ACETAMINOPHEN\OXYCODONE HYDROCHLORIDE
     Indication: SPINAL CORD INJURY
     Dosage: 5 MG/325 MG, THREE TIMES A DAY
     Route: 048
     Dates: start: 202003, end: 2020
  3. OXYCODONE/ACETAMINOPHEN [Suspect]
     Active Substance: ACETAMINOPHEN\OXYCODONE HYDROCHLORIDE
     Dosage: 5 MG/325 MG, DECREASED THE DOSE TO TWO TIMES A DAY
     Route: 048
     Dates: start: 2020
  4. FUROSEMIDE. [Concomitant]
     Active Substance: FUROSEMIDE
     Indication: HYPERTENSION
     Dosage: 20 MILLIGRAM, QD
     Route: 048
  5. ISOSORBIDE MONONITRATE. [Concomitant]
     Active Substance: ISOSORBIDE MONONITRATE
     Indication: HYPERTENSION
     Dosage: 30 MILLIGRAM, QD
     Route: 048

REACTIONS (3)
  - Photophobia [Not Recovered/Not Resolved]
  - Treatment noncompliance [Unknown]
  - Vision blurred [Not Recovered/Not Resolved]

NARRATIVE: CASE EVENT DATE: 2020
